FAERS Safety Report 8511915-7 (Version None)
Quarter: 2012Q3

REPORT INFORMATION
  Report Type: 
  Country: None (occurrence: None)
  Receive Date: 20120716
  Receipt Date: 20120629
  Transmission Date: 20120928
  Serious: Yes (Other)
  Sender: FDA-Public Use
  Company Number: JP-SANOFI-AVENTIS-2012SA050040

PATIENT
  Age: 84 Year
  Sex: Male

DRUGS (9)
  1. ADALAT [Concomitant]
     Route: 048
  2. PLETAL [Concomitant]
     Route: 048
  3. FAMOTIDINE [Concomitant]
     Route: 048
  4. ALLOPURINOL [Concomitant]
     Route: 048
  5. DEXTRAN SULFATE SODIUM [Concomitant]
     Route: 048
  6. MICARDIS [Concomitant]
     Route: 048
  7. BAYCARON [Concomitant]
     Route: 048
  8. PLAVIX [Suspect]
     Route: 048
  9. ASPIRIN [Concomitant]
     Route: 048

REACTIONS (1)
  - RHABDOMYOLYSIS [None]
